FAERS Safety Report 15395617 (Version 1)
Quarter: 2018Q3

REPORT INFORMATION
  Report Type: Spontaneous
  Country: US (occurrence: US)
  Receive Date: 20180912
  Receipt Date: 20180912
  Transmission Date: 20181010
  Serious: Yes (Death)
  Sender: FDA-Public Use
  Company Number: None

PATIENT
  Sex: Male

DRUGS (9)
  1. IRON SUPPLEM [Concomitant]
  2. ZORTRESS [Suspect]
     Active Substance: EVEROLIMUS
     Indication: RENAL TRANSPLANT
     Route: 048
     Dates: start: 20141023
  3. CALCITRIOL. [Suspect]
     Active Substance: CALCITRIOL
     Indication: CALCIUM DEFICIENCY
     Dosage: ?          OTHER FREQUENCY:TIW;?
     Route: 048
     Dates: start: 20171118
  4. METOPROLOL. [Concomitant]
     Active Substance: METOPROLOL
  5. MYCOPHENOLATE [Concomitant]
     Active Substance: MYCOPHENOLIC ACID
  6. LEVOTHYROXINE. [Concomitant]
     Active Substance: LEVOTHYROXINE
  7. TACROLIMUS. [Concomitant]
     Active Substance: TACROLIMUS
  8. TORESEMIDE [Concomitant]
     Active Substance: TORSEMIDE
  9. WARFARIN [Concomitant]
     Active Substance: WARFARIN

REACTIONS (1)
  - Death [None]
